FAERS Safety Report 9329124 (Version 2)
Quarter: 2014Q2

REPORT INFORMATION
  Report Type: Spontaneous
  Country: US (occurrence: US)
  Receive Date: 20130604
  Receipt Date: 20140522
  Transmission Date: 20141212
  Serious: Yes (Other)
  Sender: FDA-Public Use
  Company Number: US-SANOFI-AVENTIS-2012SA077559

PATIENT
  Age: 64 Year
  Sex: Male
  Weight: 60.78 kg

DRUGS (21)
  1. SOLOSTAR [Suspect]
     Indication: DEVICE THERAPY
     Dates: start: 2007
  2. SOLOSTAR [Suspect]
     Indication: DEVICE THERAPY
     Dates: start: 2007
  3. SOLOSTAR [Suspect]
     Indication: DEVICE THERAPY
     Dates: start: 2007
  4. SOLOSTAR [Suspect]
     Indication: DEVICE THERAPY
     Dates: start: 2007
  5. SOLOSTAR [Suspect]
     Indication: DEVICE THERAPY
     Dates: start: 2007
  6. LANTUS SOLOSTAR [Suspect]
     Indication: TYPE 2 DIABETES MELLITUS
     Dosage: DOSE:13 UNIT(S)
     Route: 058
     Dates: start: 2007
  7. LANTUS SOLOSTAR [Suspect]
     Indication: TYPE 2 DIABETES MELLITUS
     Dosage: DOSE:13 UNIT(S)
     Route: 058
     Dates: start: 2007
  8. LANTUS SOLOSTAR [Suspect]
     Indication: TYPE 2 DIABETES MELLITUS
     Dosage: DOSE:13 UNIT(S)
     Route: 058
     Dates: start: 2007
  9. LANTUS SOLOSTAR [Suspect]
     Indication: TYPE 2 DIABETES MELLITUS
     Dosage: DOSE:13 UNIT(S)
     Route: 058
     Dates: start: 2007
  10. LANTUS SOLOSTAR [Suspect]
     Indication: TYPE 2 DIABETES MELLITUS
     Dosage: DOSE:13 UNIT(S)
     Route: 058
     Dates: start: 2007
  11. LANTUS SOLOSTAR [Suspect]
     Indication: TYPE 2 DIABETES MELLITUS
     Dosage: DOSE:13 UNIT(S)
     Route: 058
     Dates: start: 2007
  12. NOVOLOG [Suspect]
     Indication: TYPE 2 DIABETES MELLITUS
     Route: 065
     Dates: start: 2007
  13. ZOCOR [Concomitant]
     Dates: start: 20070126
  14. AMLODIPINE BESILATE [Concomitant]
     Dates: start: 20070126
  15. PLAVIX [Concomitant]
  16. TAMSULOSIN HYDROCHLORIDE [Concomitant]
  17. CELLCEPT [Concomitant]
     Indication: RENAL TRANSPLANT
     Dates: start: 20070126
  18. ALL OTHER THERAPEUTIC PRODUCTS [Concomitant]
  19. COREG [Concomitant]
     Indication: MYOCARDIAL INFARCTION
     Dates: start: 20070126
  20. FLOMAX [Concomitant]
     Dates: start: 20070126
  21. PROGRAF [Concomitant]
     Indication: RENAL TRANSPLANT
     Dates: start: 20070126

REACTIONS (4)
  - Hypoglycaemia [Recovered/Resolved]
  - Hyperhidrosis [Not Recovered/Not Resolved]
  - Blood glucose increased [Unknown]
  - Incorrect product storage [Unknown]
